FAERS Safety Report 7052294-4 (Version None)
Quarter: 2010Q4

REPORT INFORMATION
  Report Type: 
  Country: None (occurrence: None)
  Receive Date: 20101019
  Receipt Date: 20101007
  Transmission Date: 20110411
  Serious: Yes (Hospitalization, Other)
  Sender: FDA-Public Use
  Company Number: US-ELI_LILLY_AND_COMPANY-US201004000720

PATIENT
  Sex: Female
  Weight: 117.46 kg

DRUGS (7)
  1. BYETTA [Suspect]
     Dosage: UNK, UNKNOWN
     Route: 065
     Dates: start: 20050101, end: 20080401
  2. NOVOLOG [Concomitant]
     Indication: DIABETES MELLITUS
     Dates: start: 20030101, end: 20080301
  3. GLIMEPIRIDE [Concomitant]
     Indication: DIABETES MELLITUS
     Dates: start: 20040101
  4. LANTUS [Concomitant]
     Indication: DIABETES MELLITUS
     Dosage: UNK, EACH EVENING
     Dates: start: 20040101
  5. ATENOLOL [Concomitant]
     Indication: HYPERTENSION
     Dates: start: 20000101, end: 20090101
  6. VYTORIN [Concomitant]
     Indication: BLOOD CHOLESTEROL INCREASED
     Dates: start: 20010101
  7. BUMETANIDE [Concomitant]
     Indication: FLUID RETENTION
     Dates: start: 20000101

REACTIONS (2)
  - OFF LABEL USE [None]
  - PANCREATITIS [None]
